FAERS Safety Report 10293381 (Version 1)
Quarter: 2014Q3

REPORT INFORMATION
  Report Type: Spontaneous
  Country: MX (occurrence: MX)
  Receive Date: 20140710
  Receipt Date: 20140710
  Transmission Date: 20150326
  Serious: Yes (Other)
  Sender: FDA-Public Use
  Company Number: MX-AMGEN-MEXSP2014050960

PATIENT
  Age: 68 Year
  Sex: Male

DRUGS (3)
  1. CAPECITABINE [Concomitant]
     Active Substance: CAPECITABINE
     Indication: HEPATIC CANCER
     Dosage: 850 MG/M2, BID D1 AND 14
  2. OXALIPLATIN. [Concomitant]
     Active Substance: OXALIPLATIN
     Indication: HEPATIC CANCER
     Dosage: 85 MG/M2, D1 AND 15
  3. VECTIBIX [Suspect]
     Active Substance: PANITUMUMAB
     Indication: HEPATIC CANCER
     Dosage: 6 MG/KG,  D1 AND 15
     Route: 065

REACTIONS (5)
  - Surgery [Unknown]
  - Neuropathy peripheral [Unknown]
  - Rash [Unknown]
  - Palmar-plantar erythrodysaesthesia syndrome [Unknown]
  - Haematotoxicity [Unknown]
